FAERS Safety Report 15489992 (Version 4)
Quarter: 2019Q1

REPORT INFORMATION
  Report Type: Spontaneous
  Country: CN (occurrence: CN)
  Receive Date: 20181011
  Receipt Date: 20190102
  Transmission Date: 20190417
  Serious: Yes (Hospitalization)
  Sender: FDA-Public Use
  Company Number: CN-NOVOPROD-625865

PATIENT
  Age: 71 Year
  Sex: Male
  Weight: 73 kg

DRUGS (2)
  1. INSULIN ASPART [Suspect]
     Active Substance: INSULIN ASPART
     Indication: TYPE 2 DIABETES MELLITUS
     Dosage: 28 U, QD (16 UNITS BEFORE BREAKFAST, 12 UNITS BEFORE DINNER)
     Route: 058
     Dates: start: 20180408, end: 20180410
  2. INSULIN ASPART [Suspect]
     Active Substance: INSULIN ASPART
     Dosage: 24 U, QD (14 UNITS BEFORE BREAKFAST AND 10 UNITS BEFORE DINNER)
     Route: 058
     Dates: start: 20180410, end: 20180904

REACTIONS (5)
  - Decreased appetite [Unknown]
  - Benign prostatic hyperplasia [Recovering/Resolving]
  - Thirst [Unknown]
  - Dry mouth [Unknown]
  - Condition aggravated [Recovering/Resolving]

NARRATIVE: CASE EVENT DATE: 2018
